FAERS Safety Report 23627055 (Version 1)
Quarter: 2024Q1

REPORT INFORMATION
  Report Type: Spontaneous
  Country: US (occurrence: None)
  Receive Date: 20240312
  Receipt Date: 20240312
  Transmission Date: 20240410
  Serious: Yes (Other)
  Sender: FDA-Public Use
  Company Number: None

PATIENT
  Age: 44 Year
  Sex: Male
  Weight: 76.05 kg

DRUGS (10)
  1. VICTOZA [Suspect]
     Active Substance: LIRAGLUTIDE
     Indication: Type 2 diabetes mellitus
     Dosage: FREQUENCY : DAILY;?
     Route: 058
     Dates: start: 20220204, end: 20220523
  2. Metformin IR [Concomitant]
  3. JARDIANCE [Concomitant]
  4. GLIMEPIRIDE [Concomitant]
  5. JANUVIA [Concomitant]
  6. Aspirin [Concomitant]
  7. ATORVASTATIN [Concomitant]
  8. LISINOPRIL [Concomitant]
  9. METOPROLOL SUCCINATE [Concomitant]
  10. VIAGRA [Concomitant]

REACTIONS (4)
  - Therapy cessation [None]
  - Vomiting [None]
  - Diarrhoea [None]
  - Dizziness [None]

NARRATIVE: CASE EVENT DATE: 20220523
